FAERS Safety Report 9220018 (Version 1)
Quarter: 2013Q2

REPORT INFORMATION
  Report Type: Spontaneous
  Country: US (occurrence: US)
  Receive Date: 20130409
  Receipt Date: 20130409
  Transmission Date: 20140414
  Serious: No
  Sender: FDA-Public Use
  Company Number: US-PFIZER INC-2013108346

PATIENT
  Age: 51 Year
  Sex: Male
  Weight: 85.26 kg

DRUGS (8)
  1. VIAGRA [Suspect]
     Indication: ERECTILE DYSFUNCTION
     Dosage: 100 MG, AS NEEDED
     Dates: start: 201302
  2. NITROSTAT [Concomitant]
     Indication: CHEST PAIN
     Dosage: 0.4 MG, UNK
  3. ASPIRIN [Concomitant]
     Dosage: 81 MG, 1X/DAY
  4. PRAVASTATIN [Concomitant]
     Indication: BLOOD CHOLESTEROL INCREASED
     Dosage: 20 MG, 1X/DAY
  5. COUMADIN [Concomitant]
     Dosage: 5MG DAILY FIVE DAYS A WEEK AND HALF OF 5MG FOR REST OF THE TWO DAYS DAILY
  6. RANITIDINE [Concomitant]
     Indication: GASTRIC DISORDER
     Dosage: 150 MG, 2X/DAY
  7. XOPENEX [Concomitant]
     Indication: CHRONIC OBSTRUCTIVE PULMONARY DISEASE
     Dosage: UNK
  8. FISH OIL [Concomitant]
     Dosage: UNK

REACTIONS (1)
  - Headache [Unknown]
